FAERS Safety Report 23586154 (Version 1)
Quarter: 2024Q1

REPORT INFORMATION
  Report Type: Spontaneous
  Country: PL (occurrence: PL)
  Receive Date: 20240301
  Receipt Date: 20240301
  Transmission Date: 20240409
  Serious: Yes (Hospitalization, Other)
  Sender: FDA-Public Use
  Company Number: PL-BoehringerIngelheim-2024-BI-011556

PATIENT
  Age: 58 Year
  Sex: Female

DRUGS (4)
  1. PRADAXA [Suspect]
     Active Substance: DABIGATRAN ETEXILATE MESYLATE
     Indication: Atrial fibrillation
  2. TELMISARTAN [Concomitant]
     Active Substance: TELMISARTAN
     Indication: Product used for unknown indication
  3. METFORMIN [Concomitant]
     Active Substance: METFORMIN HYDROCHLORIDE
     Indication: Product used for unknown indication
  4. PROPAFENONE [Concomitant]
     Active Substance: PROPAFENONE
     Indication: Product used for unknown indication

REACTIONS (2)
  - Intra-abdominal haemorrhage [Unknown]
  - Road traffic accident [Unknown]
